FAERS Safety Report 4286109-4 (Version None)
Quarter: 2004Q1

REPORT INFORMATION
  Report Type: 
  Country: None (occurrence: None)
  Receive Date: 20040120
  Receipt Date: 20030811
  Transmission Date: 20041129
  Serious: Yes (Other)
  Sender: FDA-Public Use
  Company Number: ENZ-ABE-133

PATIENT
  Sex: Male

DRUGS (4)
  1. ABELCET [Suspect]
     Indication: ASPERGILLOSIS
     Dosage: 395 MG DAILY IV
     Route: 042
     Dates: start: 20030809
  2. VANCOMYCIN [Concomitant]
  3. VALCYCLOVIR [Concomitant]
  4. CEFIPINE [Concomitant]

REACTIONS (1)
  - PYREXIA [None]
